FAERS Safety Report 12281800 (Version 2)
Quarter: 2016Q2

REPORT INFORMATION
  Report Type: Spontaneous
  Country: US (occurrence: US)
  Receive Date: 20160419
  Receipt Date: 20160420
  Transmission Date: 20160815
  Serious: No
  Sender: FDA-Public Use
  Company Number: US-TEVA-645594USA

PATIENT
  Age: 42 Year
  Sex: Female

DRUGS (2)
  1. ZECUITY [Suspect]
     Active Substance: SUMATRIPTAN SUCCINATE
     Route: 062
     Dates: start: 20160318, end: 20160318
  2. ZECUITY [Suspect]
     Active Substance: SUMATRIPTAN SUCCINATE
     Indication: MIGRAINE
     Route: 062
     Dates: start: 2016, end: 2016

REACTIONS (8)
  - Application site vesicles [Unknown]
  - Drug effect incomplete [Unknown]
  - Device leakage [Unknown]
  - Application site swelling [Unknown]
  - Application site pain [Unknown]
  - Application site erythema [Unknown]
  - Application site irritation [Unknown]
  - Application site pruritus [Unknown]

NARRATIVE: CASE EVENT DATE: 2016
